FAERS Safety Report 21785500 (Version 2)
Quarter: 2023Q1

REPORT INFORMATION
  Report Type: Report from Study
  Country: CA (occurrence: CA)
  Receive Date: 20221227
  Receipt Date: 20230123
  Transmission Date: 20230417
  Serious: Yes (Other)
  Sender: FDA-Public Use
  Company Number: CA-TAKEDA-CA202013610

PATIENT
  Age: 10 Year
  Sex: Female
  Weight: 25 kg

DRUGS (25)
  1. IDURSULFASE [Suspect]
     Active Substance: IDURSULFASE
     Indication: Mucopolysaccharidosis II
     Dosage: 10.7 MILLIGRAM, 1/WEEK
     Route: 042
     Dates: start: 20161215
  2. IDURSULFASE [Suspect]
     Active Substance: IDURSULFASE
     Dosage: 10.7 MILLIGRAM, 1/WEEK
     Route: 065
     Dates: start: 20161215
  3. IDURSULFASE [Suspect]
     Active Substance: IDURSULFASE
     Dosage: 12.5 MILLIGRAM, 1/WEEK
     Route: 065
     Dates: start: 20161215
  4. IDURSULFASE [Suspect]
     Active Substance: IDURSULFASE
     Dosage: 12 MILLIGRAM, 1/WEEK
     Route: 065
     Dates: start: 20161215
  5. IDURSULFASE [Suspect]
     Active Substance: IDURSULFASE
     Dosage: 12 MILLIGRAM, 1/WEEK
     Route: 065
     Dates: start: 20161215
  6. IDURSULFASE [Suspect]
     Active Substance: IDURSULFASE
     Dosage: 12 MILLIGRAM, 1/WEEK
     Route: 065
     Dates: start: 20161215
  7. IDURSULFASE [Suspect]
     Active Substance: IDURSULFASE
     Dosage: 12 MILLIGRAM, 1/WEEK
     Route: 065
     Dates: start: 20161215
  8. IDURSULFASE [Suspect]
     Active Substance: IDURSULFASE
     Dosage: 13.6 MILLIGRAM, 1/WEEK
     Route: 050
     Dates: start: 20161215
  9. IDURSULFASE [Suspect]
     Active Substance: IDURSULFASE
     Dosage: 15.6 MILLIGRAM, Q2WEEKS
     Route: 050
     Dates: start: 20161215
  10. IDURSULFASE [Suspect]
     Active Substance: IDURSULFASE
     Dosage: 3 DOSAGE FORM, 1/WEEK
     Route: 050
     Dates: start: 20161215
  11. IDURSULFASE [Suspect]
     Active Substance: IDURSULFASE
     Dosage: 3 DOSAGE FORM, 1/WEEK
     Route: 050
     Dates: start: 20161215
  12. IDURSULFASE [Suspect]
     Active Substance: IDURSULFASE
     Dosage: 3 DOSAGE FORM, 1/WEEK
     Route: 050
     Dates: start: 20161215
  13. IDURSULFASE [Suspect]
     Active Substance: IDURSULFASE
     Dosage: 13.6 MILLIGRAM, 1/WEEK
     Route: 042
     Dates: start: 20161215
  14. IDURSULFASE [Suspect]
     Active Substance: IDURSULFASE
     Dosage: 3 DOSAGE FORM, Q2WEEKS
     Route: 050
     Dates: start: 20161215
  15. IDURSULFASE [Suspect]
     Active Substance: IDURSULFASE
     Dosage: 3 DOSAGE FORM, 1/WEEK
     Route: 050
     Dates: start: 20161215
  16. IDURSULFASE [Suspect]
     Active Substance: IDURSULFASE
     Dosage: 3 DOSAGE FORM, Q2WEEKS
     Route: 050
     Dates: start: 20161215
  17. IDURSULFASE [Suspect]
     Active Substance: IDURSULFASE
     Dosage: 15.6 MILLIGRAM, Q2WEEKS
     Route: 050
     Dates: start: 20161215
  18. IDURSULFASE [Suspect]
     Active Substance: IDURSULFASE
     Dosage: 3 DOSAGE FORM, 1/WEEK
     Route: 050
     Dates: start: 20161215
  19. FLOVENT [Concomitant]
     Active Substance: FLUTICASONE PROPIONATE
     Dosage: UNK, BID
     Route: 065
     Dates: start: 20160101
  20. TYLENOL [Concomitant]
     Active Substance: ACETAMINOPHEN
     Dosage: UNK
     Route: 065
  21. DIPHENHYDRAMINE [Concomitant]
     Active Substance: DIPHENHYDRAMINE
     Dosage: UNK
     Route: 065
  22. BENADRYL [Concomitant]
     Active Substance: DIPHENHYDRAMINE HYDROCHLORIDE
     Dosage: UNK
     Route: 065
  23. ATIVAN [Concomitant]
     Active Substance: LORAZEPAM
     Indication: Anxiety
     Dosage: 0.5 MILLIGRAM, 1/WEEK
     Route: 065
     Dates: start: 20210104
  24. ZOLOFT [Concomitant]
     Active Substance: SERTRALINE HYDROCHLORIDE
     Indication: Anxiety
     Dosage: UNK UNK, QD
     Route: 065
     Dates: start: 20210105
  25. ADVIL [Concomitant]
     Active Substance: IBUPROFEN
     Dosage: 200 MILLIGRAM
     Route: 065

REACTIONS (37)
  - Asthmatic crisis [Recovered/Resolved]
  - Gastrointestinal disorder [Not Recovered/Not Resolved]
  - Sensation of foreign body [Recovered/Resolved]
  - Influenza like illness [Recovered/Resolved]
  - Body temperature fluctuation [Recovered/Resolved]
  - Poor venous access [Recovered/Resolved]
  - Thirst [Recovered/Resolved]
  - Oropharyngeal pain [Not Recovered/Not Resolved]
  - Weight increased [Unknown]
  - Ear pain [Unknown]
  - Anxiety [Recovered/Resolved]
  - Restlessness [Recovered/Resolved]
  - Fear [Recovered/Resolved]
  - Hyperventilation [Recovered/Resolved]
  - Panic reaction [Unknown]
  - Tension [Unknown]
  - Multiple allergies [Recovered/Resolved]
  - Blood pressure decreased [Recovered/Resolved]
  - Asthma [Recovering/Resolving]
  - Benign neoplasm [Not Recovered/Not Resolved]
  - Oxygen saturation increased [Recovered/Resolved]
  - Obstruction [Not Recovered/Not Resolved]
  - Respiratory tract infection viral [Unknown]
  - Blood pressure increased [Unknown]
  - Illness [Unknown]
  - Upper respiratory tract infection [Recovered/Resolved]
  - COVID-19 [Not Recovered/Not Resolved]
  - Fatigue [Recovered/Resolved]
  - Chills [Not Recovered/Not Resolved]
  - Tremor [Recovered/Resolved]
  - Cough [Not Recovered/Not Resolved]
  - Diarrhoea [Not Recovered/Not Resolved]
  - Vomiting [Recovered/Resolved]
  - Headache [Recovered/Resolved]
  - Pyrexia [Recovered/Resolved]
  - Product dose omission issue [Unknown]
  - Inappropriate schedule of product administration [Recovered/Resolved]

NARRATIVE: CASE EVENT DATE: 20200413
